FAERS Safety Report 6034731-7 (Version None)
Quarter: 2009Q1

REPORT INFORMATION
  Report Type: 
  Country: None (occurrence: None)
  Receive Date: 20090109
  Receipt Date: 20090109
  Transmission Date: 20090719
  Serious: No
  Sender: FDA-Public Use
  Company Number: None

PATIENT
  Sex: Male

DRUGS (4)
  1. ZOMETA [Suspect]
     Indication: PROSTATE CANCER METASTATIC
     Dosage: 4 MG EVERY 3 WEEKS IV
     Route: 042
     Dates: start: 20030101, end: 20040901
  2. LUPRON [Concomitant]
  3. TAXOTERE [Concomitant]
  4. XRT [Concomitant]

REACTIONS (3)
  - FAILURE OF IMPLANT [None]
  - IMPAIRED HEALING [None]
  - JAW DISORDER [None]
